FAERS Safety Report 14027624 (Version 5)
Quarter: 2020Q1

REPORT INFORMATION
  Report Type: Spontaneous
  Country: US (occurrence: US)
  Receive Date: 20170929
  Receipt Date: 20200327
  Transmission Date: 20200409
  Serious: Yes (Other)
  Sender: FDA-Public Use
  Company Number: US-PFIZER INC-2017419897

PATIENT
  Age: 72 Year
  Sex: Female

DRUGS (2)
  1. XELJANZ XR [Suspect]
     Active Substance: TOFACITINIB CITRATE
     Dosage: 11 MG, UNK
  2. XELJANZ XR [Suspect]
     Active Substance: TOFACITINIB CITRATE
     Dosage: 11 MG, ALTERNATE DAY

REACTIONS (7)
  - Myocardial infarction [Unknown]
  - Muscle spasms [Unknown]
  - Oropharyngeal pain [Not Recovered/Not Resolved]
  - Arthritis [Unknown]
  - Diarrhoea [Unknown]
  - Product use issue [Unknown]
  - Off label use [Unknown]
